FAERS Safety Report 8864448 (Version 1)
Quarter: 2012Q4

REPORT INFORMATION
  Report Type: 
  Country: CZ (occurrence: CZ)
  Receive Date: 20121024
  Receipt Date: 20121024
  Transmission Date: 20130627
  Serious: Yes (Other)
  Sender: FDA-Public Use
  Company Number: CZ-ROCHE-1147685

PATIENT
  Age: 70 Year
  Sex: Male

DRUGS (3)
  1. RITUXIMAB [Suspect]
     Indication: WALDENSTROM^S MACROGLOBULINAEMIA
     Dosage: day 1
     Route: 065
  2. FLUDARABINE [Concomitant]
     Indication: WALDENSTROM^S MACROGLOBULINAEMIA
     Dosage: days 1-5
     Route: 065
  3. DEXAMETHASONE [Concomitant]
     Indication: WALDENSTROM^S MACROGLOBULINAEMIA
     Dosage: day 1
     Route: 065

REACTIONS (1)
  - Disseminated intravascular coagulation [Recovered/Resolved]
